FAERS Safety Report 4390169-X (Version None)
Quarter: 2004Q3

REPORT INFORMATION
  Report Type: 
  Country: None (occurrence: None)
  Receive Date: 20040706
  Receipt Date: 20040526
  Transmission Date: 20050211
  Serious: Yes (Hospitalization)
  Sender: FDA-Public Use
  Company Number: PL-GLAXOSMITHKLINE-B0333862A

PATIENT
  Age: 64 Year
  Sex: Female
  Weight: 48 kg

DRUGS (5)
  1. ROPINIROLE [Suspect]
     Indication: PARKINSON'S DISEASE
     Route: 048
  2. DUOMOX [Suspect]
     Dosage: 500MG TWICE PER DAY
     Route: 048
     Dates: start: 20040402, end: 20040409
  3. FROMILID [Suspect]
     Dosage: 250MG TWICE PER DAY
     Route: 048
     Dates: start: 20040402, end: 20040409
  4. CASTOR OIL [Concomitant]
     Indication: CONSTIPATION
     Route: 054
     Dates: start: 20040214
  5. DEBRIDAT [Concomitant]
     Indication: CONSTIPATION
     Dosage: 100MG THREE TIMES PER DAY
     Route: 048
     Dates: start: 20040409

REACTIONS (3)
  - ABDOMINAL PAIN [None]
  - FLATULENCE [None]
  - IRRITABLE BOWEL SYNDROME [None]
